FAERS Safety Report 9932961 (Version 1)
Quarter: 2014Q1

REPORT INFORMATION
  Report Type: Spontaneous
  Country: US (occurrence: US)
  Receive Date: 20140228
  Receipt Date: 20140228
  Transmission Date: 20141002
  Serious: No
  Sender: FDA-Public Use
  Company Number: US-ABBVIE-13P-163-1114610-00

PATIENT
  Age: 66 Year
  Sex: Male
  Weight: 104.42 kg

DRUGS (1)
  1. ANDROGEL [Suspect]
     Indication: BLOOD TESTOSTERONE DECREASED
     Dosage: TWO PUMPS PER DAY
     Dates: start: 201211, end: 201305

REACTIONS (5)
  - Prostatomegaly [Unknown]
  - Emotional distress [Unknown]
  - Libido decreased [Unknown]
  - Prostatic disorder [Recovering/Resolving]
  - Dysuria [Recovering/Resolving]
